FAERS Safety Report 15985008 (Version 1)
Quarter: 2019Q1

REPORT INFORMATION
  Report Type: Report from Study
  Country: ES (occurrence: ES)
  Receive Date: 20190220
  Receipt Date: 20190220
  Transmission Date: 20190418
  Serious: Yes (Other)
  Sender: FDA-Public Use
  Company Number: ES-TEVA-2019-ES-1014168

PATIENT
  Age: 49 Year
  Sex: Female

DRUGS (6)
  1. HIDROFEROL [Concomitant]
     Active Substance: CALCIFEDIOL
     Indication: VITAMIN D DECREASED
     Route: 048
     Dates: start: 20161017, end: 20170410
  2. COPAXONE [Suspect]
     Active Substance: GLATIRAMER ACETATE
     Indication: RELAPSING-REMITTING MULTIPLE SCLEROSIS
     Route: 058
     Dates: start: 20180625
  3. TRANEXAMIC ACID. [Concomitant]
     Active Substance: TRANEXAMIC ACID
     Indication: MULTIPLE SCLEROSIS
     Route: 048
     Dates: start: 20150706
  4. FERRUM [Concomitant]
     Active Substance: FERROUS FUMARATE
     Indication: BLOOD IRON DECREASED
     Route: 048
     Dates: start: 20130326
  5. MEDROXYPREGESTERONE [Concomitant]
     Indication: MENSTRUAL CYCLE MANAGEMENT
     Route: 048
     Dates: start: 20160429
  6. ARGININE IBUPROFEN [Concomitant]
     Active Substance: ARGININE\IBUPROFEN
     Indication: ANALGESIC THERAPY
     Route: 048
     Dates: start: 20141105

REACTIONS (1)
  - Lipodystrophy acquired [Not Recovered/Not Resolved]

NARRATIVE: CASE EVENT DATE: 20180625
